FAERS Safety Report 6207814-6 (Version None)
Quarter: 2009Q2

REPORT INFORMATION
  Report Type: 
  Country: None (occurrence: None)
  Receive Date: 20090528
  Receipt Date: 20090521
  Transmission Date: 20091009
  Serious: Yes (Life-Threatening, Other)
  Sender: FDA-Public Use
  Company Number: JP-ELI_LILLY_AND_COMPANY-JP200903000173

PATIENT
  Age: 82 Year
  Sex: Female

DRUGS (11)
  1. EVISTA [Suspect]
     Indication: OSTEOPOROSIS
     Dosage: 60 MG, DAILY (1/D)
     Route: 048
     Dates: end: 20090407
  2. OMEPRAL [Interacting]
     Indication: REFLUX OESOPHAGITIS
     Route: 048
  3. ARTIST [Concomitant]
     Route: 048
  4. LASIX [Concomitant]
     Route: 065
  5. DIGOXIN [Concomitant]
     Route: 065
  6. MAGMITT [Concomitant]
     Route: 048
  7. YODEL [Concomitant]
     Route: 048
  8. PURSENNID [Concomitant]
     Route: 048
  9. VITAMEDIN [Concomitant]
     Route: 065
  10. ALDACTONE [Concomitant]
     Route: 048
  11. HERBAL PREPARATION [Concomitant]
     Route: 065

REACTIONS (2)
  - DRUG INTERACTION [None]
  - PLATELET COUNT DECREASED [None]
